FAERS Safety Report 25109375 (Version 1)
Quarter: 2025Q1

REPORT INFORMATION
  Report Type: Spontaneous
  Country: US (occurrence: US)
  Receive Date: 20250323
  Receipt Date: 20250323
  Transmission Date: 20250409
  Serious: No
  Sender: GLAXOSMITHKLINE
  Company Number: US-GSK-US2025030833

PATIENT
  Age: 66 Year
  Sex: Female

DRUGS (8)
  1. TRELEGY ELLIPTA [Suspect]
     Active Substance: FLUTICASONE FUROATE\UMECLIDINIUM BROMIDE\VILANTEROL TRIFENATATE
     Indication: Asthma
     Dosage: 1 PUFF(S), QD
     Dates: start: 20250311, end: 20250313
  2. XANAX [Concomitant]
     Active Substance: ALPRAZOLAM
     Indication: Sleep disorder
  3. GILOTRIF [Concomitant]
     Active Substance: AFATINIB
     Indication: Non-small cell lung cancer
  4. PANTOPRAZOLE [Concomitant]
     Active Substance: PANTOPRAZOLE
     Indication: Gastrooesophageal reflux disease
  5. AFATINIB [Concomitant]
     Active Substance: AFATINIB
     Indication: Non-small cell lung cancer
  6. LOPERAMIDE [Concomitant]
     Active Substance: LOPERAMIDE
     Indication: Diarrhoea
  7. LOMOTIL [Concomitant]
     Active Substance: ATROPINE SULFATE\DIPHENOXYLATE HYDROCHLORIDE
     Indication: Diarrhoea
  8. CLARITIN [Concomitant]
     Active Substance: LORATADINE
     Indication: Hypersensitivity

REACTIONS (6)
  - Muscular weakness [Unknown]
  - Asthenia [Unknown]
  - Tremor [Unknown]
  - Psychomotor hyperactivity [Unknown]
  - Fear [Unknown]
  - Expired device used [Unknown]

NARRATIVE: CASE EVENT DATE: 20250311
